FAERS Safety Report 25925493 (Version 1)
Quarter: 2025Q4

REPORT INFORMATION
  Report Type: Spontaneous
  Country: US (occurrence: US)
  Receive Date: 20251015
  Receipt Date: 20251015
  Transmission Date: 20260119
  Serious: Yes (Hospitalization, Other)
  Sender: MALLINCKRODT
  Company Number: US-MALLINCKRODT-MNK202506322

PATIENT
  Age: 70 Year
  Sex: Male

DRUGS (1)
  1. TERLIPRESSIN [Suspect]
     Active Substance: TERLIPRESSIN
     Indication: Hepatorenal syndrome
     Dosage: UNKNOWN

REACTIONS (3)
  - Renal impairment [Unknown]
  - Testicular infarction [Unknown]
  - Pulmonary oedema [Unknown]
